FAERS Safety Report 22400243 (Version 1)
Quarter: 2023Q2

REPORT INFORMATION
  Report Type: Spontaneous
  Country: US (occurrence: None)
  Receive Date: 20230601
  Receipt Date: 20230601
  Transmission Date: 20230721
  Serious: No
  Sender: FDA-Public Use
  Company Number: None

PATIENT
  Age: 53 Year
  Sex: Female
  Weight: 99 kg

DRUGS (13)
  1. PRALUENT [Suspect]
     Active Substance: ALIROCUMAB
     Indication: Blood cholesterol increased
  2. RAMIPRIL [Concomitant]
     Active Substance: RAMIPRIL
  3. HYDROCHLOROTHIAZIDE [Concomitant]
     Active Substance: HYDROCHLOROTHIAZIDE
  4. OMEPRAZOLE [Concomitant]
     Active Substance: OMEPRAZOLE
  5. TIZANIDINE [Concomitant]
     Active Substance: TIZANIDINE
  6. spirnolactone [Concomitant]
  7. paraoxetine [Concomitant]
  8. BOTOX [Concomitant]
     Active Substance: ONABOTULINUMTOXINA
  9. VITAMINS [Concomitant]
     Active Substance: VITAMINS
  10. MAGNESIUM [Concomitant]
     Active Substance: MAGNESIUM
  11. VITAMIN D NOS [Concomitant]
     Active Substance: VITAMIN D NOS
  12. VITAMIN B [Concomitant]
     Active Substance: VITAMIN B
  13. MELATONIN [Concomitant]
     Active Substance: MELATONIN

REACTIONS (1)
  - Muscle spasms [None]

NARRATIVE: CASE EVENT DATE: 20230601
